FAERS Safety Report 4983090-7 (Version None)
Quarter: 2006Q2

REPORT INFORMATION
  Report Type: 
  Country: None (occurrence: None)
  Receive Date: 20060426
  Receipt Date: 20060206
  Transmission Date: 20061013
  Serious: Yes (Life-Threatening, Other)
  Sender: FDA-Public Use
  Company Number: FR-NOVOPROD-250681

PATIENT
  Age: 58 Year
  Sex: Male
  Weight: 66 kg

DRUGS (7)
  1. LEVEMIR [Suspect]
     Indication: DIABETES MELLITUS INSULIN-DEPENDENT
     Dosage: 32 IU, UNK
     Route: 058
     Dates: start: 20050921
  2. EUROBIOL [Concomitant]
     Dosage: 8 UNK, UNK
     Route: 048
     Dates: start: 20050627
  3. VASTEN [Concomitant]
     Dosage: 20 MG, UNK
     Route: 048
     Dates: start: 20050627
  4. COVERSYL                                /BEL/ [Concomitant]
     Dosage: 4 MG, UNK
     Route: 048
     Dates: start: 20050627
  5. SERESTA [Concomitant]
     Dosage: 10 MG, UNK
     Dates: start: 20050627
  6. DICETEL [Concomitant]
     Dosage: 200 MG, UNK
     Route: 048
     Dates: start: 20050627
  7. KARDEGIC [Concomitant]
     Dosage: 75 MG, UNK
     Route: 048
     Dates: start: 20050627

REACTIONS (5)
  - GASTROENTERITIS [None]
  - HYPERHIDROSIS [None]
  - HYPOGLYCAEMIA [None]
  - PNEUMONITIS [None]
  - SYNCOPE [None]
